FAERS Safety Report 7060405-X (Version None)
Quarter: 2010Q4

REPORT INFORMATION
  Report Type: 
  Country: None (occurrence: None)
  Receive Date: 20101025
  Receipt Date: 20101019
  Transmission Date: 20110411
  Serious: Yes (Other)
  Sender: FDA-Public Use
  Company Number: BR-BAYER-201019716LA

PATIENT
  Age: 49 Year
  Sex: Female

DRUGS (4)
  1. BETAFERON [Suspect]
     Indication: MULTIPLE SCLEROSIS
     Dosage: BETAJECT
     Route: 065
     Dates: start: 20100101, end: 20100901
  2. BETAFERON [Suspect]
     Dosage: BETAJECT
     Route: 065
     Dates: start: 20060801, end: 20100101
  3. COPAXONE [Concomitant]
     Dates: start: 20101001
  4. CORUS H [Concomitant]
     Indication: HYPERTENSION
     Dates: start: 20030101

REACTIONS (3)
  - ALANINE AMINOTRANSFERASE ABNORMAL [None]
  - ASPARTATE AMINOTRANSFERASE ABNORMAL [None]
  - HEPATIC STEATOSIS [None]
